FAERS Safety Report 8937918 (Version 1)
Quarter: 2012Q4

REPORT INFORMATION
  Report Type: Spontaneous
  Country: US (occurrence: None)
  Receive Date: 20121128
  Receipt Date: 20121128
  Transmission Date: 20130627
  Serious: Yes (Other)
  Sender: FDA-Public Use
  Company Number: None

PATIENT
  Age: 40 Year
  Sex: Female

DRUGS (7)
  1. TACROLIMUS [Suspect]
     Dosage: 75MG DAILY PO
  2. ASA [Suspect]
     Indication: CORONARY ARTERY DISEASE
     Dosage: 325MG DAILY PO
     Route: 048
  3. ASA [Suspect]
     Indication: DRUG-ELUTING CORONARY STENT PLACEMENT
     Dosage: 325MG DAILY PO
     Route: 048
  4. ZOCOR [Concomitant]
  5. TOPROL XL [Concomitant]
  6. CLARITIN [Concomitant]
  7. SYNTHROID [Concomitant]

REACTIONS (4)
  - Drug level below therapeutic [None]
  - White blood cell count increased [None]
  - Product substitution issue [None]
  - Malabsorption [None]
